FAERS Safety Report 7971121-1 (Version None)
Quarter: 2011Q4

REPORT INFORMATION
  Report Type: 
  Country: None (occurrence: None)
  Receive Date: 20111212
  Receipt Date: 20111212
  Transmission Date: 20120403
  Serious: Yes (Life-Threatening, Hospitalization, Disabling, Other)
  Sender: FDA-Public Use
  Company Number: None

PATIENT
  Age: 52 Year
  Sex: Female
  Weight: 129.72 kg

DRUGS (11)
  1. MIRAPEX [Concomitant]
  2. OMEPRAZOLE [Concomitant]
  3. EVOXAC [Concomitant]
  4. BENICAR [Concomitant]
  5. HYDROXYCHLOROQUINE [Concomitant]
  6. AMBIEN [Concomitant]
  7. DILTIAZEM HCL [Concomitant]
  8. MULTAQ [Suspect]
     Indication: ATRIAL FIBRILLATION
     Dosage: 1 TABLET
     Route: 048
     Dates: start: 20101217, end: 20110115
  9. WARFARIN SODIUM [Concomitant]
  10. CLONAZEPAM [Concomitant]
  11. LEXAPRO [Concomitant]

REACTIONS (3)
  - CARDIAC FAILURE CONGESTIVE [None]
  - BLOOD PRESSURE DECREASED [None]
  - DEHYDRATION [None]
